FAERS Safety Report 8617755-2 (Version None)
Quarter: 2012Q3

REPORT INFORMATION
  Report Type: 
  Country: None (occurrence: None)
  Receive Date: 20120824
  Receipt Date: 20120801
  Transmission Date: 20120928
  Serious: Yes (Hospitalization)
  Sender: FDA-Public Use
  Company Number: JP-009507513-2012SP018333

PATIENT

DRUGS (28)
  1. REBETOL [Suspect]
     Dosage: 400 MG, QD
     Route: 048
     Dates: start: 20120209, end: 20120307
  2. DIOVAN [Concomitant]
     Indication: HYPERTENSION
     Dosage: 80 MG, QD
     Route: 048
  3. REBAMIPIDE [Concomitant]
     Indication: PROPHYLAXIS
     Dosage: 100 MG, PRN
     Route: 048
     Dates: start: 20120126
  4. PEG-INTRON [Suspect]
     Dosage: 1.5MCG/KG/WEEK
     Route: 058
     Dates: start: 20120223, end: 20120301
  5. URSO 250 [Concomitant]
     Indication: HEPATITIS C
     Dosage: 900 MG, ONCE
     Route: 048
     Dates: start: 20120416
  6. PROHEPARUM [Concomitant]
     Indication: HEPATITIS C
     Dosage: 6 DF, ONCE
     Route: 048
     Dates: start: 20120416
  7. NIFEDIPINE CR SAWAI [Concomitant]
     Indication: HYPERTENSION
     Route: 048
  8. PRIMPERAN TAB [Concomitant]
     Indication: PRODUCT USED FOR UNKNOWN INDICATION
     Dosage: PRN
     Route: 048
     Dates: end: 20120308
  9. TELAVIC [Suspect]
     Indication: HEPATITIS C
     Dosage: 1500 MG, ONCE
     Route: 048
     Dates: start: 20120126, end: 20120214
  10. FAMOTIDINE [Concomitant]
     Indication: PROPHYLAXIS
     Dosage: 100MG/DAY, AS NEEDED.
     Route: 048
     Dates: start: 20120126
  11. PEGINTERFERON ALFA-2B [Suspect]
     Dosage: 1.5 MICROGRAM PER KILOGRAM, QW
     Route: 058
     Dates: start: 20120223, end: 20120301
  12. FAMOTIDINE [Concomitant]
     Indication: GASTRITIS
     Dosage: 20 MG, QD
     Route: 048
  13. LOXOPROFEN [Concomitant]
     Indication: HEPATITIS C
     Dosage: 60 MG, PRN
     Route: 048
     Dates: start: 20120126
  14. LOXOPROFEN [Concomitant]
     Indication: PRODUCT USED FOR UNKNOWN INDICATION
     Dosage: PRN
     Route: 048
     Dates: end: 20120308
  15. PEG-INTRON [Suspect]
     Indication: HEPATITIS C
     Dosage: 1.5MCG/KG/WEEK
     Route: 058
     Dates: start: 20120126, end: 20120209
  16. TELAVIC [Suspect]
     Dosage: 750 MG, ONCE
     Route: 048
     Dates: start: 20120221, end: 20120307
  17. VALSARTAN  AND HYDROCHLOROTHIAZIDE [Concomitant]
     Indication: HYPERTENSION
     Dosage: 1 DF, ONCE
     Route: 048
  18. REBETOL [Suspect]
     Indication: HEPATITIS C
     Dosage: 800 MG, QD
     Route: 048
     Dates: start: 20120126, end: 20120208
  19. DIOVAN [Concomitant]
     Route: 048
  20. PRIMPERAN TAB [Concomitant]
     Indication: HEPATITIS C
     Dosage: 5 MG, PRN
     Route: 048
     Dates: start: 20120128
  21. REBAMIPIDE [Concomitant]
     Indication: PRODUCT USED FOR UNKNOWN INDICATION
     Dosage: PRN
     Route: 048
     Dates: end: 20120308
  22. PEGINTERFERON ALFA-2B [Suspect]
     Indication: HEPATITIS C
     Dosage: 1.5 MICROGRAM PER KILOGRAM, QW
     Route: 058
     Dates: start: 20120126, end: 20120209
  23. ANTIVIRAL (UNSPECIFIED) [Suspect]
     Indication: HEPATITIS C
     Dosage: 1500 MG, QD
     Route: 048
     Dates: start: 20120126, end: 20120214
  24. ANTIVIRAL (UNSPECIFIED) [Suspect]
     Dosage: 750 MG, QD
     Route: 048
     Dates: start: 20120221, end: 20120307
  25. FAMOTIDINE [Concomitant]
     Dosage: 20 MG, ONCE
     Route: 048
  26. FAMOTIDINE [Concomitant]
     Indication: HEPATITIS C
     Dosage: 7.5 G, ONCE
     Route: 048
     Dates: start: 20120711
  27. GLYCYRON [Concomitant]
     Indication: HEPATITIS C
     Dosage: 6 DF, ONCE
     Route: 048
     Dates: start: 20120416
  28. SEPAMIT [Concomitant]
     Indication: HYPERTENSION
     Dosage: 20 MG, QD
     Route: 048

REACTIONS (3)
  - DEAFNESS [None]
  - DIZZINESS [None]
  - DECREASED APPETITE [None]
